FAERS Safety Report 4866501-7 (Version None)
Quarter: 2005Q4

REPORT INFORMATION
  Report Type: 
  Country: None (occurrence: None)
  Receive Date: 20051227
  Receipt Date: 20051005
  Transmission Date: 20060501
  Serious: Yes (Other)
  Sender: FDA-Public Use
  Company Number: US-MERCK-0510USA05176

PATIENT
  Age: 68 Year
  Sex: Female
  Weight: 81 kg

DRUGS (1)
  1. VIOXX [Suspect]
     Indication: ARTHRITIS
     Route: 048
     Dates: start: 20030730, end: 20030828

REACTIONS (5)
  - CARDIOVASCULAR DISORDER [None]
  - CATARACT [None]
  - HAEMATURIA [None]
  - RETINAL ARTERY OCCLUSION [None]
  - TACHYCARDIA [None]
